FAERS Safety Report 15651212 (Version 2)
Quarter: 2018Q4

REPORT INFORMATION
  Report Type: Report from Study
  Country: CA (occurrence: CA)
  Receive Date: 20181123
  Receipt Date: 20181208
  Transmission Date: 20190205
  Serious: Yes (Death, Hospitalization)
  Sender: FDA-Public Use
  Company Number: CA-TAIHO ONCOLOGY  INC-EU-2018-02126

PATIENT
  Age: 49 Year
  Sex: Female
  Weight: 67 kg

DRUGS (2)
  1. LONSURF [Suspect]
     Active Substance: TIPIRACIL HYDROCHLORIDE\TRIFLURIDINE
     Indication: ADENOCARCINOMA OF COLON
     Dosage: CYCLE 1
     Route: 048
     Dates: start: 20180531, end: 20180628
  2. LONSURF [Suspect]
     Active Substance: TIPIRACIL HYDROCHLORIDE\TRIFLURIDINE
     Indication: COLON CANCER STAGE IV
     Dosage: CYCLES 2 AND 3.  CYCLE 3 STARTED 28/JUL/2018
     Route: 048
     Dates: start: 20180629, end: 20180824

REACTIONS (7)
  - Vomiting [Unknown]
  - Fatigue [Unknown]
  - Cachexia [Unknown]
  - Cancer pain [Recovering/Resolving]
  - Disease progression [Fatal]
  - Nausea [Recovering/Resolving]
  - Neutropenia [Unknown]

NARRATIVE: CASE EVENT DATE: 2018
